FAERS Safety Report 8581474-1 (Version None)
Quarter: 2012Q3

REPORT INFORMATION
  Report Type: 
  Country: None (occurrence: None)
  Receive Date: 20120809
  Receipt Date: 20120801
  Transmission Date: 20120928
  Serious: Yes (Other)
  Sender: FDA-Public Use
  Company Number: DE-SANOFI-AVENTIS-2012SA049135

PATIENT
  Age: 31 Year
  Sex: Male
  Weight: 130 kg

DRUGS (3)
  1. LANTUS [Suspect]
     Dosage: INITIAL DOSE 30 IU, INCREASED TO 34 IU DURING THE FOLLOWING 12 WEEKS
     Route: 058
     Dates: start: 20110908
  2. OTHER LIPID MODIFYING AGENTS [Concomitant]
  3. APIDRA [Suspect]
     Dosage: INITIAL DOSE 20-8-12 IU, INCREASED TO 28-12-20 IU DURING THE FOLLOWING 12 WEEKS
     Route: 058
     Dates: start: 20110908

REACTIONS (2)
  - DIABETIC NEUROPATHY [None]
  - DIABETIC NEPHROPATHY [None]
